FAERS Safety Report 6282830-7 (Version None)
Quarter: 2009Q3

REPORT INFORMATION
  Report Type: 
  Country: None (occurrence: None)
  Receive Date: 20090724
  Receipt Date: 20090715
  Transmission Date: 20100115
  Serious: Yes (Other)
  Sender: FDA-Public Use
  Company Number: AR-ABBOTT-09P-007-0582644-00

PATIENT
  Sex: Female
  Weight: 68 kg

DRUGS (5)
  1. RITONAVIR SOFT GELATIN CAPSULES [Suspect]
     Indication: HIV INFECTION
     Route: 048
     Dates: start: 20080724, end: 20090108
  2. DARUNAVIR [Concomitant]
     Indication: HIV INFECTION
     Route: 048
     Dates: start: 20080724, end: 20090108
  3. COMBIVIR [Concomitant]
     Indication: HIV INFECTION
     Dosage: 300/600 MG
     Route: 048
     Dates: start: 20080724
  4. VIREAD [Concomitant]
     Indication: HIV INFECTION
     Route: 048
     Dates: start: 20080724
  5. KALETRA [Concomitant]
     Indication: HIV INFECTION
     Dosage: 800/200MG
     Route: 048
     Dates: start: 20090108

REACTIONS (1)
  - STILLBIRTH [None]
